FAERS Safety Report 6734966-1 (Version None)
Quarter: 2010Q2

REPORT INFORMATION
  Report Type: 
  Country: None (occurrence: None)
  Receive Date: 20100521
  Receipt Date: 20100511
  Transmission Date: 20101027
  Serious: Yes (Other)
  Sender: FDA-Public Use
  Company Number: AT-PFIZER INC-2010058942

PATIENT
  Age: 77 Year
  Sex: Female

DRUGS (1)
  1. SALAZOPYRIN [Suspect]
     Indication: POLYARTHRITIS
     Dosage: 2000 MG, 1X/DAY
     Dates: start: 20050101

REACTIONS (1)
  - POLYARTHRITIS [None]
